FAERS Safety Report 4510590-6 (Version None)
Quarter: 2004Q4

REPORT INFORMATION
  Report Type: 
  Country: None (occurrence: None)
  Receive Date: 20041119
  Receipt Date: 20041118
  Transmission Date: 20050328
  Serious: Yes (Hospitalization, Other)
  Sender: FDA-Public Use
  Company Number: THQ2002A01304

PATIENT
  Age: 73 Year
  Sex: Male

DRUGS (10)
  1. LANSOPRAZOLE [Suspect]
     Dosage: 15 MG (1 D), PER ORAL
     Route: 048
     Dates: start: 20020301, end: 20020301
  2. MODOPAR (MODOPAR) [Suspect]
     Dosage: SEE IMAGE
     Route: 048
     Dates: start: 20020301, end: 20020719
  3. MODOPAR (MODOPAR) [Suspect]
     Dosage: SEE IMAGE
     Route: 048
     Dates: start: 20020719
  4. PROZAC [Concomitant]
  5. ASPIRIN [Concomitant]
  6. ZOLOFT [Concomitant]
  7. SOTALOL HCL [Concomitant]
  8. TICLID [Concomitant]
  9. SIMVASTATIN         (SIMVASTATIN) (TABLETS) [Concomitant]
  10. TRIMETAZIDINE (TRIMETAZIDINE)  (TABLETS) [Concomitant]

REACTIONS (12)
  - ANXIETY [None]
  - APATHY [None]
  - BRADYPHRENIA [None]
  - CONDITION AGGRAVATED [None]
  - DEPRESSION [None]
  - DIFFICULTY IN WALKING [None]
  - DRUG INTERACTION [None]
  - ENCEPHALOPATHY [None]
  - EXTRAPYRAMIDAL DISORDER [None]
  - MENTAL IMPAIRMENT [None]
  - MYOCLONUS [None]
  - PARKINSON'S DISEASE [None]
